FAERS Safety Report 12181150 (Version 3)
Quarter: 2016Q2

REPORT INFORMATION
  Report Type: Spontaneous
  Country: TR (occurrence: TR)
  Receive Date: 20160315
  Receipt Date: 20160408
  Transmission Date: 20160815
  Serious: Yes (Hospitalization, Other)
  Sender: FDA-Public Use
  Company Number: TR-PFIZER INC-2016157229

PATIENT
  Age: 45 Year
  Sex: Male

DRUGS (3)
  1. XELJANZ [Suspect]
     Active Substance: TOFACITINIB CITRATE
     Indication: RHEUMATOID ARTHRITIS
     Dosage: 5 MG, 2X/DAY
  2. PREDNOL /00049601/ [Concomitant]
     Active Substance: METHYLPREDNISOLONE
  3. DELTACORTRIL [Concomitant]
     Active Substance: PREDNISOLONE

REACTIONS (1)
  - Arthritis bacterial [Not Recovered/Not Resolved]
